FAERS Safety Report 4407809-9 (Version None)
Quarter: 2004Q3

REPORT INFORMATION
  Report Type: 
  Country: None (occurrence: None)
  Receive Date: 20040721
  Receipt Date: 20040715
  Transmission Date: 20050211
  Serious: Yes (Life-Threatening, Other)
  Sender: FDA-Public Use
  Company Number: DE-JNJFOC-20040704173

PATIENT
  Age: 34 Year
  Sex: Female
  Weight: 70 kg

DRUGS (1)
  1. TOPAMAX [Suspect]
     Indication: SIMPLE PARTIAL SEIZURES
     Dosage: 300 MG, IN 1 DAY, ORAL
     Route: 048

REACTIONS (6)
  - COMA [None]
  - CONDITION AGGRAVATED [None]
  - NEPHROLITHIASIS [None]
  - POLYNEUROPATHY [None]
  - SYSTEMIC LUPUS ERYTHEMATOSUS [None]
  - UROSEPSIS [None]
